FAERS Safety Report 6902268-6 (Version None)
Quarter: 2010Q3

REPORT INFORMATION
  Report Type: 
  Country: None (occurrence: None)
  Receive Date: 20100803
  Receipt Date: 20080506
  Transmission Date: 20110219
  Serious: No
  Sender: FDA-Public Use
  Company Number: US-PFIZER INC-2008037760

PATIENT
  Sex: Female

DRUGS (5)
  1. LYRICA [Suspect]
     Indication: FIBROMYALGIA
     Dates: start: 20080402
  2. AMBIEN [Concomitant]
  3. ALPRAZOLAM [Concomitant]
  4. SYNTHROID [Concomitant]
  5. DARVOCET [Concomitant]

REACTIONS (7)
  - BREAST MASS [None]
  - BREAST TENDERNESS [None]
  - DRY EYE [None]
  - FATIGUE [None]
  - HEADACHE [None]
  - PAIN [None]
  - SEDATION [None]
